FAERS Safety Report 17989157 (Version 1)
Quarter: 2020Q3

REPORT INFORMATION
  Report Type: Spontaneous
  Country: CN (occurrence: CN)
  Receive Date: 20200707
  Receipt Date: 20200707
  Transmission Date: 20201103
  Serious: Yes (Other)
  Sender: FDA-Public Use
  Company Number: CN-ASTRAZENECA-2020SE85170

PATIENT
  Age: 2998 Week
  Sex: Female
  Weight: 57 kg

DRUGS (4)
  1. NEXIUM [Suspect]
     Active Substance: ESOMEPRAZOLE MAGNESIUM
     Indication: HELICOBACTER INFECTION
     Route: 048
     Dates: start: 20200615, end: 20200618
  2. BI TE NUO ER BITNAI [Concomitant]
     Indication: HELICOBACTER INFECTION
     Route: 048
     Dates: start: 20200615, end: 20200618
  3. AMOXICILLIN. [Suspect]
     Active Substance: AMOXICILLIN
     Indication: HELICOBACTER INFECTION
     Route: 048
     Dates: start: 20200615, end: 20200618
  4. YONGXI [Suspect]
     Active Substance: DOXYCYCLINE HYCLATE
     Indication: HELICOBACTER INFECTION
     Route: 048
     Dates: start: 20200615, end: 20200618

REACTIONS (5)
  - Erythema [Unknown]
  - Rash [Recovering/Resolving]
  - Oedema peripheral [Not Recovered/Not Resolved]
  - Swelling [Unknown]
  - Pruritus [Recovering/Resolving]

NARRATIVE: CASE EVENT DATE: 20200618
